FAERS Safety Report 9628838 (Version 1)
Quarter: 2013Q4

REPORT INFORMATION
  Report Type: Spontaneous
  Country: US (occurrence: US)
  Receive Date: 20131017
  Receipt Date: 20131017
  Transmission Date: 20140711
  Serious: No
  Sender: FDA-Public Use
  Company Number: US-GLAXOSMITHKLINE-A1037348A

PATIENT
  Age: 8 Year
  Sex: Female

DRUGS (2)
  1. CEFTIN [Suspect]
     Indication: OTITIS MEDIA ACUTE
     Dosage: 100ML TWICE PER DAY
     Route: 048
     Dates: start: 20130809, end: 20130811
  2. VITAMINS [Concomitant]

REACTIONS (2)
  - Dysgeusia [Unknown]
  - Incorrect product storage [Unknown]
